FAERS Safety Report 9306533 (Version 2)
Quarter: 2013Q2

REPORT INFORMATION
  Report Type: Spontaneous
  Country: US (occurrence: None)
  Receive Date: 20130329
  Receipt Date: 20130402
  Transmission Date: 20140414
  Serious: Yes (Hospitalization)
  Sender: FDA-Public Use
  Company Number: USA/USA/13/0027392

PATIENT
  Age: 56 Year
  Sex: Female

DRUGS (9)
  1. IBANDRONATE SODIUM [Suspect]
     Indication: OSTEOPOROSIS
     Route: 048
     Dates: start: 20130102
  2. ATENOLOL (ATENOLOL) [Concomitant]
  3. HYDROCHLOROTHIAZIDE [Concomitant]
  4. VITAMIN B12 (CYANOCOBALAMIN) [Concomitant]
  5. FISH OIL (FISH OIL) [Concomitant]
  6. CALCIUM OTC (CALCIUM) [Concomitant]
  7. ASPIRIN (ACETYLSALICYLIC ACID) [Concomitant]
  8. VITAMIN C [Concomitant]
  9. VITAMIN E (TOCOPHEROL) [Concomitant]

REACTIONS (7)
  - Influenza like illness [None]
  - Blood pressure decreased [None]
  - Chest pain [None]
  - Diarrhoea [None]
  - Vomiting [None]
  - Headache [None]
  - Myalgia [None]
